FAERS Safety Report 9280033 (Version 1)
Quarter: 2013Q2

REPORT INFORMATION
  Report Type: Spontaneous
  Country: US (occurrence: None)
  Receive Date: 20130506
  Receipt Date: 20130506
  Transmission Date: 20140414
  Serious: Yes (Life-Threatening, Hospitalization)
  Sender: FDA-Public Use
  Company Number: None

PATIENT
  Age: 38 Year
  Sex: Female
  Weight: 90.72 kg

DRUGS (1)
  1. TIGER BALM [Suspect]
     Indication: BACK PAIN
     Dosage: MAX DOSE 1 USE?ONE TREATMENT  4 HOUR ON HEAT

REACTIONS (4)
  - Psychotic disorder [None]
  - Chemical burn of respiratory tract [None]
  - Accidental exposure to product [None]
  - Exposure via inhalation [None]
